FAERS Safety Report 8489531-5 (Version None)
Quarter: 2012Q3

REPORT INFORMATION
  Report Type: 
  Country: None (occurrence: None)
  Receive Date: 20120705
  Receipt Date: 20120625
  Transmission Date: 20120928
  Serious: Yes (Other)
  Sender: FDA-Public Use
  Company Number: US-ASTRAZENECA-2012SE42836

PATIENT
  Age: 59 Year
  Sex: Female
  Weight: 59 kg

DRUGS (4)
  1. SEROQUEL [Suspect]
     Indication: ANXIETY
     Route: 048
     Dates: start: 19970101
  2. SEROQUEL [Suspect]
     Indication: MAJOR DEPRESSION
     Route: 048
     Dates: start: 19970101
  3. SEROQUEL [Suspect]
     Dosage: 150 MG IN THE MORNING AND 300 MG AT NIGHT
     Route: 048
     Dates: start: 20120401
  4. SEROQUEL [Suspect]
     Dosage: 150 MG IN THE MORNING AND 300 MG AT NIGHT
     Route: 048
     Dates: start: 20120401

REACTIONS (8)
  - BACK PAIN [None]
  - COUGH [None]
  - BRONCHIAL IRRITATION [None]
  - WEIGHT DECREASED [None]
  - DRUG INEFFECTIVE [None]
  - NERVOUSNESS [None]
  - APHAGIA [None]
  - SUICIDAL IDEATION [None]
